FAERS Safety Report 4892700-4 (Version None)
Quarter: 2006Q1

REPORT INFORMATION
  Report Type: 
  Country: None (occurrence: None)
  Receive Date: 20060125
  Receipt Date: 20060125
  Transmission Date: 20060701
  Serious: Yes (Hospitalization)
  Sender: FDA-Public Use
  Company Number: None

PATIENT
  Sex: Female

DRUGS (5)
  1. VICODIN [Suspect]
     Indication: PAIN
     Dosage: 1-2 TAB, Q4-6H, ORAL
     Route: 048
     Dates: start: 20050919, end: 20050920
  2. AMITRIPTYLINE HCL [Concomitant]
  3. AMBIEN [Concomitant]
  4. RANITIDINE [Concomitant]
  5. PENICILLIN V POTASSIUM [Concomitant]

REACTIONS (6)
  - AGITATION [None]
  - ANALGESIC DRUG LEVEL INCREASED [None]
  - DEPRESSED LEVEL OF CONSCIOUSNESS [None]
  - DRUG SCREEN POSITIVE [None]
  - FOAMING AT MOUTH [None]
  - HYPERTENSION [None]
